FAERS Safety Report 6763955-6 (Version None)
Quarter: 2010Q2

REPORT INFORMATION
  Report Type: 
  Country: None (occurrence: None)
  Receive Date: 20100610
  Receipt Date: 20100601
  Transmission Date: 20101027
  Serious: Yes (Hospitalization)
  Sender: FDA-Public Use
  Company Number: US-BAYER-201016271BCC

PATIENT
  Age: 66 Year
  Sex: Female
  Weight: 56 kg

DRUGS (1)
  1. ALKA-SELTZER PLUS MUCUS + CONGESTION LIQUID GELS [Suspect]
     Indication: COUGH
     Dosage: UNIT DOSE: 1 DF
     Route: 048
     Dates: start: 20100406

REACTIONS (6)
  - ABDOMINAL DISCOMFORT [None]
  - ASTHENIA [None]
  - BLOOD PRESSURE DECREASED [None]
  - HAEMATEMESIS [None]
  - RENAL FAILURE [None]
  - WEIGHT DECREASED [None]
